FAERS Safety Report 6958507-9 (Version None)
Quarter: 2010Q3

REPORT INFORMATION
  Report Type: 
  Country: None (occurrence: None)
  Receive Date: 20100831
  Receipt Date: 20100825
  Transmission Date: 20110219
  Serious: Yes (Hospitalization)
  Sender: FDA-Public Use
  Company Number: RU-ROCHE-717327

PATIENT
  Sex: Female
  Weight: 55 kg

DRUGS (9)
  1. TOCILIZUMAB [Suspect]
     Indication: RHEUMATOID ARTHRITIS
     Dosage: FREQUENCY: MONTHLY. TEMPORARILY INTERRUPTED. LAST DOSE PRIOR TO SAE:18 MAY 2010
     Route: 042
     Dates: start: 20091229, end: 20100612
  2. TOCILIZUMAB [Suspect]
     Route: 042
     Dates: start: 20100224
  3. TOCILIZUMAB [Suspect]
     Route: 042
     Dates: start: 20100322
  4. TOCILIZUMAB [Suspect]
     Route: 042
     Dates: start: 20100423
  5. TOCILIZUMAB [Suspect]
     Route: 042
     Dates: start: 20100518
  6. TOCILIZUMAB [Suspect]
     Dosage: DOSE RESTARTED.
     Route: 042
     Dates: start: 20100721
  7. METHOTREXATE SODIUM [Suspect]
     Indication: RHEUMATOID ARTHRITIS
     Dosage: FREQUENCY: WEEKLY. TEMPORARILY INTERRUPTED. LAST DOSE PRIOR TO SAE:18 MAY 2010
     Route: 048
     Dates: start: 20091229, end: 20100612
  8. METHOTREXATE SODIUM [Suspect]
     Dosage: DOSE RESTARTED
     Route: 048
     Dates: start: 20100721
  9. NIMESULIDE [Concomitant]
     Route: 048

REACTIONS (3)
  - ABSCESS LIMB [None]
  - APPENDICITIS [None]
  - LYMPHADENITIS [None]
